APPROVED DRUG PRODUCT: DEXEDRINE SPANSULE
Active Ingredient: DEXTROAMPHETAMINE SULFATE
Strength: 15MG
Dosage Form/Route: CAPSULE, EXTENDED RELEASE;ORAL
Application: N017078 | Product #003 | TE Code: AB
Applicant: IMPAX LABORATORIES INC
Approved: Approved Prior to Jan 1, 1982 | RLD: Yes | RS: Yes | Type: RX